FAERS Safety Report 17749335 (Version 1)
Quarter: 2020Q2

REPORT INFORMATION
  Report Type: Spontaneous
  Country: US (occurrence: US)
  Receive Date: 20200505
  Receipt Date: 20200505
  Transmission Date: 20200714
  Serious: Yes (Hospitalization)
  Sender: FDA-Public Use
  Company Number: US-BRISTOL-MYERS SQUIBB COMPANY-BMS-2020-035154

PATIENT
  Age: 85 Year
  Sex: Male
  Weight: 72.4 kg

DRUGS (1)
  1. ELIQUIS [Suspect]
     Active Substance: APIXABAN
     Indication: PRODUCT USED FOR UNKNOWN INDICATION
     Dosage: 5 MILLIGRAM, BID (MORNING AND NIGHT)
     Route: 048

REACTIONS (4)
  - Cardiac disorder [Unknown]
  - Urinary tract infection [Unknown]
  - Malaise [Unknown]
  - Product quality issue [Unknown]

NARRATIVE: CASE EVENT DATE: 20200328
